FAERS Safety Report 8187784-4 (Version None)
Quarter: 2012Q1

REPORT INFORMATION
  Report Type: 
  Country: None (occurrence: None)
  Receive Date: 20120306
  Receipt Date: 20120302
  Transmission Date: 20120608
  Serious: Yes (Other)
  Sender: FDA-Public Use
  Company Number: JP-B.I. PHARMACEUTICALS,INC./RIDGEFIELD-2012-BP-02951NB

PATIENT
  Age: 76 Year
  Sex: Female
  Weight: 45.6 kg

DRUGS (1)
  1. PRADAXA [Suspect]
     Indication: CEREBROVASCULAR ACCIDENT PROPHYLAXIS
     Dosage: 220 MG
     Route: 048
     Dates: end: 20120130

REACTIONS (2)
  - EMBOLIC CEREBRAL INFARCTION [None]
  - HAEMORRHAGIC CEREBRAL INFARCTION [None]
